FAERS Safety Report 8370690-X (Version None)
Quarter: 2012Q1

REPORT INFORMATION
  Report Type: 
  Country: None (occurrence: None)
  Receive Date: 20120323
  Receipt Date: 20110916
  Transmission Date: 20120608
  Serious: Yes (Other)
  Sender: FDA-Public Use
  Company Number: 163-21880-11092136

PATIENT
  Age: 69 Year
  Sex: Female
  Weight: 43.0917 kg

DRUGS (12)
  1. CALCIUM + VITAMIN D (OS-CAL) [Concomitant]
  2. PRASTERONE [Concomitant]
  3. DEXAMETHASONE [Concomitant]
  4. VITAMIN E [Concomitant]
  5. STRONTIUM (STRONTIUM CHLORIDE) [Concomitant]
  6. REVLIMID [Suspect]
     Indication: MULTIPLE MYELOMA
     Dosage: 25 MG, DAILY X 21 DAYS, PO
     Route: 048
     Dates: start: 20110406
  7. COQ10 (UBIDECARENONE) [Concomitant]
  8. ASCORBIC ACID [Concomitant]
  9. REGVERATROL (NATURE'S OWN ANTIOXIDANT FORMULA) [Concomitant]
  10. VITAMIN B12 [Concomitant]
  11. ASPIRIN [Concomitant]
  12. LOVAZA [Concomitant]

REACTIONS (2)
  - MOUTH ULCERATION [None]
  - FULL BLOOD COUNT DECREASED [None]
